FAERS Safety Report 6291701-1 (Version None)
Quarter: 2009Q3

REPORT INFORMATION
  Report Type: 
  Country: None (occurrence: None)
  Receive Date: 20090730
  Receipt Date: 20090722
  Transmission Date: 20100115
  Serious: Yes (Hospitalization, Disabling, Other)
  Sender: FDA-Public Use
  Company Number: US-ELI_LILLY_AND_COMPANY-US200907005063

PATIENT
  Sex: Female

DRUGS (8)
  1. EVISTA [Suspect]
     Dosage: UNK, UNKNOWN
     Route: 065
  2. ARICEPT [Concomitant]
     Dosage: UNK, UNKNOWN
     Route: 065
  3. NAMENDA [Concomitant]
     Dosage: UNK, UNKNOWN
     Route: 065
  4. LOPRESSOR [Concomitant]
     Indication: HEART RATE IRREGULAR
     Dosage: UNK, UNKNOWN
     Route: 065
  5. ASPIRIN [Concomitant]
     Dosage: UNK, UNKNOWN
     Route: 065
  6. CALCIUM [Concomitant]
     Dosage: UNK, UNKNOWN
     Route: 065
  7. LOVAZA [Concomitant]
     Dosage: UNK, UNKNOWN
     Route: 065
  8. MULTI-VITAMINS [Concomitant]
     Dosage: UNK, UNKNOWN
     Route: 065

REACTIONS (6)
  - APHASIA [None]
  - ASTHENIA [None]
  - CEREBROVASCULAR ACCIDENT [None]
  - FALL [None]
  - PARALYSIS [None]
  - THROMBOSIS [None]
